FAERS Safety Report 6756523-3 (Version None)
Quarter: 2010Q2

REPORT INFORMATION
  Report Type: 
  Country: None (occurrence: None)
  Receive Date: 20100604
  Receipt Date: 20100601
  Transmission Date: 20101027
  Serious: Yes (Hospitalization)
  Sender: FDA-Public Use
  Company Number: B0658619A

PATIENT
  Sex: Female
  Weight: 81 kg

DRUGS (2)
  1. LAPATINIB [Suspect]
     Indication: BREAST CANCER
     Dosage: 1000MG PER DAY
     Route: 048
     Dates: start: 20100113
  2. DOCETAXEL [Suspect]
     Indication: BREAST CANCER
     Dosage: 194MG EVERY 3 WEEKS
     Route: 042
     Dates: start: 20100113, end: 20100428

REACTIONS (2)
  - FEBRILE NEUTROPENIA [None]
  - PYREXIA [None]
